FAERS Safety Report 13375349 (Version 2)
Quarter: 2017Q2

REPORT INFORMATION
  Report Type: Spontaneous
  Country: FI (occurrence: FI)
  Receive Date: 20170327
  Receipt Date: 20170504
  Transmission Date: 20170830
  Serious: Yes (Hospitalization, Other)
  Sender: FDA-Public Use
  Company Number: FI-BRISTOL-MYERS SQUIBB COMPANY-BMS-2017-025109

PATIENT
  Age: 82 Year
  Sex: Female

DRUGS (3)
  1. ELIQUIS [Suspect]
     Active Substance: APIXABAN
     Indication: CEREBROVASCULAR ACCIDENT PROPHYLAXIS
     Dosage: 5 MG, BID
     Route: 065
     Dates: start: 20151111, end: 20161114
  2. MULTAQ [Concomitant]
     Active Substance: DRONEDARONE
     Indication: ATRIAL FIBRILLATION
     Dosage: 400 MG, BID
     Route: 048
     Dates: start: 20160307
  3. AMLODIPINE [Concomitant]
     Active Substance: AMLODIPINE BESYLATE
     Indication: BLOOD PRESSURE MEASUREMENT
     Dosage: 5 MG, QD
     Route: 048
     Dates: start: 20161108, end: 20161202

REACTIONS (6)
  - Hip fracture [Unknown]
  - Haemorrhage [Recovered/Resolved]
  - Peritoneal haematoma [Unknown]
  - Cerebral infarction [Recovering/Resolving]
  - Fall [Unknown]
  - Hemiparesis [Unknown]

NARRATIVE: CASE EVENT DATE: 20161114
